FAERS Safety Report 16321793 (Version 1)
Quarter: 2019Q2

REPORT INFORMATION
  Report Type: Spontaneous
  Country: US (occurrence: US)
  Receive Date: 20190412
  Receipt Date: 20190412
  Transmission Date: 20190711
  Serious: No
  Sender: FDA-Public Use
  Company Number: None

PATIENT
  Age: 69 Year
  Sex: Female

DRUGS (3)
  1. EXEMESTANE. [Concomitant]
     Active Substance: EXEMESTANE
  2. PRIMIDONE. [Suspect]
     Active Substance: PRIMIDONE
  3. IBRANCE [Suspect]
     Active Substance: PALBOCICLIB
     Dates: start: 20190121

REACTIONS (4)
  - Drug interaction [None]
  - Contusion [None]
  - Drug ineffective [None]
  - Gingival bleeding [None]

NARRATIVE: CASE EVENT DATE: 20190412
